FAERS Safety Report 8227892-2 (Version None)
Quarter: 2012Q1

REPORT INFORMATION
  Report Type: 
  Country: None (occurrence: None)
  Receive Date: 20120322
  Receipt Date: 20120316
  Transmission Date: 20120608
  Serious: Yes (Other)
  Sender: FDA-Public Use
  Company Number: BR-PFIZER INC-2010122098

PATIENT
  Age: 39 Year
  Sex: Male
  Weight: 88 kg

DRUGS (2)
  1. DOSTINEX [Suspect]
     Indication: PITUITARY TUMOUR BENIGN
     Dosage: 0.5 MG, 2X/WEEK (ONE TABLET ON TUESDAY AND ONE TABLET ON FRIDAY)
     Route: 048
     Dates: start: 20060101
  2. DOSTINEX [Suspect]
     Indication: HYPERPROLACTINAEMIA
     Dosage: 0.5 MG, 2X/WEEK (1 TABLET ON TUESDAY AND 1 TABLET ON FRIDAY)
     Route: 048
     Dates: start: 20070901

REACTIONS (9)
  - HIATUS HERNIA [None]
  - POOR QUALITY DRUG ADMINISTERED [None]
  - GALACTORRHOEA [None]
  - POLYURIA [None]
  - DECREASED APPETITE [None]
  - CHEST PAIN [None]
  - DRUG INEFFECTIVE [None]
  - WEIGHT DECREASED [None]
  - NIPPLE PAIN [None]
